FAERS Safety Report 23418162 (Version 1)
Quarter: 2024Q1

REPORT INFORMATION
  Report Type: Spontaneous
  Country: US (occurrence: US)
  Receive Date: 20240118
  Receipt Date: 20240118
  Transmission Date: 20240409
  Serious: No
  Sender: FDA-Public Use
  Company Number: US-PFIZER INC-202101748340

PATIENT
  Age: 20 Year
  Sex: Female
  Weight: 87.2 kg

DRUGS (3)
  1. IBRANCE [Suspect]
     Active Substance: PALBOCICLIB
     Indication: Ovarian cancer
     Dosage: TAKE 1 TABLET BY MOUTH DAILY WITH FOOD FOR 21 DAYS THEN 7 DAYS OFF
     Route: 048
     Dates: start: 20200526
  2. IBRANCE [Suspect]
     Active Substance: PALBOCICLIB
     Dosage: 125 MG, 1X/DAY
     Route: 048
     Dates: start: 20230503
  3. FEMARA [Concomitant]
     Active Substance: LETROZOLE
     Indication: Chemotherapy
     Dosage: UNK
     Route: 048
     Dates: start: 20190430

REACTIONS (3)
  - Off label use [Unknown]
  - Product dose omission in error [Unknown]
  - Blood cholesterol abnormal [Unknown]
